FAERS Safety Report 25484667 (Version 1)
Quarter: 2025Q2

REPORT INFORMATION
  Report Type: Spontaneous
  Country: US (occurrence: None)
  Receive Date: 20250627
  Receipt Date: 20250627
  Transmission Date: 20250716
  Serious: Yes (Life-Threatening, Hospitalization)
  Sender: FDA-CTU
  Company Number: None

PATIENT
  Age: 40 Year
  Sex: Male
  Weight: 141 kg

DRUGS (2)
  1. TRULICITY [Suspect]
     Active Substance: DULAGLUTIDE
     Indication: Diabetes mellitus
     Route: 058
     Dates: start: 20250408, end: 20250504
  2. OZEMPIC [Suspect]
     Active Substance: SEMAGLUTIDE

REACTIONS (12)
  - Acute kidney injury [None]
  - Hyperkalaemia [None]
  - Pseudostroke [None]
  - Cerebral infarction [None]
  - Pancreatitis [None]
  - Pancreatitis necrotising [None]
  - Portal vein thrombosis [None]
  - Aspartate aminotransferase increased [None]
  - Alanine aminotransferase increased [None]
  - Atrial fibrillation [None]
  - Critical illness [None]
  - Multiple organ dysfunction syndrome [None]

NARRATIVE: CASE EVENT DATE: 20250506
